FAERS Safety Report 5370256-X (Version None)
Quarter: 2007Q2

REPORT INFORMATION
  Report Type: 
  Country: None (occurrence: None)
  Receive Date: 20070625
  Receipt Date: 20070625
  Transmission Date: 20071010
  Serious: Yes (Death, Life-Threatening)
  Sender: FDA-Public Use
  Company Number: None

PATIENT
  Age: 38 Year
  Sex: Male
  Weight: 162 kg

DRUGS (1)
  1. DROTRECOGIN ALFA 40MG/200ML OVER 19.5ML/HR (24 MCG/KG/HR) [Suspect]
     Indication: SEPSIS
     Dosage: 3888MCG Q1HR IV
     Route: 042
     Dates: start: 20070606, end: 20070607

REACTIONS (2)
  - CARDIO-RESPIRATORY ARREST [None]
  - HAEMORRHAGE [None]
